FAERS Safety Report 21411204 (Version 4)
Quarter: 2023Q1

REPORT INFORMATION
  Report Type: Spontaneous
  Country: US (occurrence: US)
  Receive Date: 20221005
  Receipt Date: 20230119
  Transmission Date: 20230418
  Serious: Yes (Other)
  Sender: FDA-Public Use
  Company Number: US-PFIZER INC-2021003809

PATIENT
  Age: 66 Year
  Sex: Male
  Weight: 87.54 kg

DRUGS (2)
  1. XELJANZ [Suspect]
     Active Substance: TOFACITINIB CITRATE
     Indication: Colitis ulcerative
     Dosage: 10 MG, 2X/DAY
     Route: 048
     Dates: start: 20201210
  2. XELJANZ [Suspect]
     Active Substance: TOFACITINIB CITRATE
     Indication: Condition aggravated
     Dosage: 5 MG, 2X/DAY

REACTIONS (3)
  - Thrombosis [Not Recovered/Not Resolved]
  - Vascular graft [Unknown]
  - Expired product administered [Unknown]
